FAERS Safety Report 8318423-7 (Version None)
Quarter: 2012Q2

REPORT INFORMATION
  Report Type: 
  Country: None (occurrence: None)
  Receive Date: 20120427
  Receipt Date: 20120423
  Transmission Date: 20120825
  Serious: Yes (Hospitalization, Congenital Anomaly)
  Sender: FDA-Public Use
  Company Number: US-GLAXOSMITHKLINE-A0685056A

PATIENT
  Sex: Male
  Weight: 2.5 kg

DRUGS (5)
  1. PAXIL [Suspect]
     Indication: PRODUCT USED FOR UNKNOWN INDICATION
     Route: 064
  2. DIGOXIN [Concomitant]
  3. MULTI-VITAMINS [Concomitant]
     Route: 064
  4. IRON SUPPLEMENT [Concomitant]
     Route: 064
  5. PAXIL CR [Suspect]
     Indication: BIPOLAR DISORDER
     Dosage: 37.5MG TWICE PER DAY
     Route: 064

REACTIONS (5)
  - ATRIAL SEPTAL DEFECT [None]
  - FOETAL EXPOSURE DURING PREGNANCY [None]
  - FOETAL HEART RATE ABNORMAL [None]
  - VENTRICULAR SEPTAL DEFECT [None]
  - HEART DISEASE CONGENITAL [None]
